FAERS Safety Report 6368343-2 (Version None)
Quarter: 2009Q3

REPORT INFORMATION
  Report Type: 
  Country: None (occurrence: None)
  Receive Date: 20090922
  Receipt Date: 20090909
  Transmission Date: 20100115
  Serious: Yes (Death, Other)
  Sender: FDA-Public Use
  Company Number: KR-PFIZER INC-2009239180

PATIENT
  Age: 54 Year

DRUGS (17)
  1. VORICONAZOLE [Suspect]
     Indication: ASPERGILLOSIS
     Dosage: 300 MG, 2X/DAY
     Route: 048
  2. VORICONAZOLE [Suspect]
     Dosage: 200 MG, 2X/DAY
     Dates: start: 20080829, end: 20080906
  3. IMMUNOGLOBULINS [Concomitant]
     Indication: THROMBOTIC THROMBOCYTOPENIC PURPURA
     Dosage: 5000 MG, DAILY
     Route: 042
     Dates: start: 20080826, end: 20080830
  4. MEROPEN [Concomitant]
     Indication: PNEUMONIA
     Dosage: UNK MG, 3X/DAY
     Route: 042
     Dates: start: 20080820, end: 20080904
  5. VANCOMYCIN [Concomitant]
     Indication: PNEUMONIA
     Dosage: UNK MG, 2X/DAY
     Route: 042
     Dates: start: 20080828, end: 20080906
  6. CYMEVENE [Concomitant]
     Indication: PNEUMONIA
     Dosage: UNK
     Route: 042
     Dates: start: 20080824, end: 20080906
  7. MORPHINE HYDROCHLORIDE [Concomitant]
     Indication: PAIN
     Dosage: 20 MG, DAILY
     Route: 042
     Dates: start: 20080826, end: 20080906
  8. RANITIDINE [Concomitant]
     Indication: ANTACID THERAPY
     Dosage: UNK
     Route: 042
     Dates: start: 20080810, end: 20080906
  9. ALPROSTADIL [Concomitant]
     Dosage: UNK
     Route: 042
     Dates: start: 20080812, end: 20080906
  10. TRANSAMIN [Concomitant]
     Indication: COAGULOPATHY
     Dosage: 2500 MG DAILY
     Route: 042
     Dates: start: 20080821, end: 20080901
  11. LIPITOR [Concomitant]
     Indication: BLOOD CHOLESTEROL INCREASED
     Dosage: 10 MG DAILY
     Route: 048
     Dates: start: 20080822, end: 20080906
  12. LIPITOR [Concomitant]
     Indication: BLOOD TRIGLYCERIDES INCREASED
  13. LASIX [Concomitant]
     Indication: DIURETIC THERAPY
     Dosage: 20 MG DAILY
     Route: 042
     Dates: start: 20080805, end: 20080906
  14. METHYLPREDNISOLONE [Concomitant]
     Indication: SYSTEMIC LUPUS ERYTHEMATOSUS
     Dosage: UNK
     Route: 042
     Dates: start: 20080801, end: 20080806
  15. METHYLPREDNISOLONE [Concomitant]
     Dosage: UNK
     Route: 042
     Dates: start: 20080807, end: 20080828
  16. METHYLPREDNISOLONE [Concomitant]
     Dosage: UNK
     Route: 042
     Dates: start: 20080829, end: 20080904
  17. METHYLPREDNISOLONE [Concomitant]
     Dosage: UNK
     Route: 042
     Dates: start: 20080905, end: 20080906

REACTIONS (2)
  - PNEUMONIA [None]
  - THROMBOTIC THROMBOCYTOPENIC PURPURA [None]
